FAERS Safety Report 7207448-0 (Version None)
Quarter: 2011Q1

REPORT INFORMATION
  Report Type: 
  Country: None (occurrence: None)
  Receive Date: 20110103
  Receipt Date: 20101220
  Transmission Date: 20110831
  Serious: Yes (Hospitalization, Other)
  Sender: FDA-Public Use
  Company Number: PHHY2010SE87381

PATIENT
  Sex: Female

DRUGS (4)
  1. TROMBYL [Concomitant]
  2. TRIOBE [Concomitant]
  3. DUROFERON [Concomitant]
  4. TRAMADOL HEXAL [Suspect]
     Dosage: 100 MG DAILY
     Route: 048
     Dates: start: 20101101, end: 20101115

REACTIONS (4)
  - GENERAL PHYSICAL HEALTH DETERIORATION [None]
  - FALL [None]
  - COGNITIVE DISORDER [None]
  - CONFUSIONAL STATE [None]
